FAERS Safety Report 5399745-9 (Version None)
Quarter: 2007Q3

REPORT INFORMATION
  Report Type: 
  Country: None (occurrence: None)
  Receive Date: 20070727
  Receipt Date: 20070717
  Transmission Date: 20080115
  Serious: Yes (Other)
  Sender: FDA-Public Use
  Company Number: US-PFIZER INC-2007060640

PATIENT
  Sex: Female

DRUGS (2)
  1. NEURONTIN [Suspect]
     Indication: COMPLEX REGIONAL PAIN SYNDROME
  2. NEURONTIN [Suspect]
     Indication: PAIN

REACTIONS (5)
  - DEPRESSION [None]
  - DRUG EFFECT INCREASED [None]
  - EUPHORIC MOOD [None]
  - EXPRESSIVE LANGUAGE DISORDER [None]
  - FEELING ABNORMAL [None]
